FAERS Safety Report 16105449 (Version 1)
Quarter: 2019Q1

REPORT INFORMATION
  Report Type: Spontaneous
  Country: US (occurrence: US)
  Receive Date: 20190322
  Receipt Date: 20190322
  Transmission Date: 20190418
  Serious: No
  Sender: FDA-Public Use
  Company Number: US-BAYER-2019-057352

PATIENT
  Age: 79 Year
  Sex: Female
  Weight: 83 kg

DRUGS (1)
  1. MIRALAX [Suspect]
     Active Substance: POLYETHYLENE GLYCOL 3350
     Dosage: UNK
     Route: 048
     Dates: start: 20190318, end: 20190320

REACTIONS (2)
  - Drug ineffective [Unknown]
  - Expired product administered [Unknown]
